FAERS Safety Report 24150481 (Version 3)
Quarter: 2024Q3

REPORT INFORMATION
  Report Type: Report from Study
  Country: US (occurrence: US)
  Receive Date: 20240730
  Receipt Date: 20240822
  Transmission Date: 20241016
  Serious: Yes (Hospitalization, Other)
  Sender: ABBVIE
  Company Number: US-ABBVIE-5853822

PATIENT
  Sex: Female
  Weight: 73 kg

DRUGS (6)
  1. HUMIRA [Suspect]
     Active Substance: ADALIMUMAB
     Indication: Spondyloarthropathy
     Dosage: FORM STRENGTH-40MG
     Route: 058
     Dates: start: 2020
  2. FENOFIBRATE [Concomitant]
     Active Substance: FENOFIBRATE
     Indication: Blood cholesterol increased
  3. LISINOPRIL [Concomitant]
     Active Substance: LISINOPRIL
     Indication: Hypertension
     Dosage: 10 MG
     Dates: start: 20240721, end: 20240807
  4. LISINOPRIL [Concomitant]
     Active Substance: LISINOPRIL
     Indication: Hypertension
     Dosage: 10 MILLIGRAM
     Dates: start: 20240808
  5. SYNTHROID [Concomitant]
     Active Substance: LEVOTHYROXINE SODIUM
     Indication: Hypothyroidism
  6. EZETIMIBE [Concomitant]
     Active Substance: EZETIMIBE
     Indication: Blood cholesterol increased

REACTIONS (14)
  - Spondyloarthropathy [Recovering/Resolving]
  - Off label use [Not Recovered/Not Resolved]
  - Procedural complication [Unknown]
  - Hypertension [Recovering/Resolving]
  - Arthritis [Unknown]
  - Neck pain [Recovering/Resolving]
  - Back pain [Recovering/Resolving]
  - Intervertebral disc protrusion [Recovering/Resolving]
  - Therapeutic product effect incomplete [Not Recovered/Not Resolved]
  - Musculoskeletal stiffness [Recovering/Resolving]
  - Spinal stenosis [Recovering/Resolving]
  - Vertebral osteophyte [Unknown]
  - Vertebral foraminal stenosis [Recovering/Resolving]
  - Intervertebral disc disorder [Unknown]

NARRATIVE: CASE EVENT DATE: 20200101
